FAERS Safety Report 22609662 (Version 9)
Quarter: 2023Q4

REPORT INFORMATION
  Report Type: Report from Study
  Country: US (occurrence: US)
  Receive Date: 20230616
  Receipt Date: 20231019
  Transmission Date: 20240110
  Serious: No
  Sender: FDA-Public Use
  Company Number: US-002147023-NVSC2023US137516

PATIENT
  Sex: Female

DRUGS (1)
  1. KESIMPTA [Suspect]
     Active Substance: OFATUMUMAB
     Indication: Multiple sclerosis
     Dosage: 20 MG, QMO
     Route: 058

REACTIONS (11)
  - Fatigue [Not Recovered/Not Resolved]
  - Visual impairment [Unknown]
  - Migraine [Recovering/Resolving]
  - White blood cell count decreased [Unknown]
  - Pain [Recovering/Resolving]
  - Pyrexia [Recovering/Resolving]
  - Chills [Recovering/Resolving]
  - Headache [Recovering/Resolving]
  - Injection site reaction [Unknown]
  - Insomnia [Recovering/Resolving]
  - Therapeutic response shortened [Unknown]
